FAERS Safety Report 23041020 (Version 2)
Quarter: 2023Q4

REPORT INFORMATION
  Report Type: Spontaneous
  Country: US (occurrence: US)
  Receive Date: 20231006
  Receipt Date: 20231009
  Transmission Date: 20240109
  Serious: Yes (Other)
  Sender: FDA-Public Use
  Company Number: US-009507513-2310USA001974

PATIENT
  Sex: Male

DRUGS (12)
  1. KEYTRUDA [Suspect]
     Active Substance: PEMBROLIZUMAB
     Indication: Metastasis
     Dosage: UNK
     Dates: start: 20190604, end: 20210414
  2. PEMETREXED [Suspect]
     Active Substance: PEMETREXED
     Indication: Metastasis
     Dosage: UNK
     Dates: start: 20190604, end: 20210414
  3. CARBOPLATIN [Suspect]
     Active Substance: CARBOPLATIN
     Indication: Metastasis
     Dosage: UNK
     Dates: start: 20190604, end: 20190812
  4. ONDANSETRON [Concomitant]
     Active Substance: ONDANSETRON
     Indication: Nausea
     Dosage: 8 MILLIGRAM, PRN
     Route: 048
     Dates: start: 201905
  5. TRAMADOL [Concomitant]
     Active Substance: TRAMADOL\TRAMADOL HYDROCHLORIDE
     Indication: Back pain
     Dosage: 50 MILLIGRAM, AS NEEDED
     Route: 048
     Dates: start: 201905
  6. TYLENOL [Concomitant]
     Active Substance: ACETAMINOPHEN
     Indication: Back pain
     Dosage: 500 MILLIGRAM, AS NEEDED
     Route: 048
     Dates: start: 201905
  7. CALCIUM CARBONATE\CHOLECALCIFEROL [Concomitant]
     Active Substance: CALCIUM CARBONATE\CHOLECALCIFEROL
     Indication: Routine health maintenance
     Dosage: 1 DOSAGE FORM, QD
     Route: 048
     Dates: start: 2011
  8. FOLIC ACID [Concomitant]
     Active Substance: FOLIC ACID
     Indication: Anaemia
     Dosage: 1 MILLIGRAM
     Route: 048
     Dates: start: 201905
  9. TOPROL XL [Concomitant]
     Active Substance: METOPROLOL SUCCINATE
     Indication: Hypertension
     Dosage: 25 MILLIGRAM, QD
     Route: 048
     Dates: start: 2011
  10. SENOKOT [Concomitant]
     Active Substance: SENNOSIDES
     Indication: Constipation
     Dosage: 2 DOSAGE FORM, AS NEEDED
     Route: 048
     Dates: start: 201905
  11. OXYCODONE [Concomitant]
     Active Substance: OXYCODONE
     Indication: Proctalgia
  12. LEVOFLOXACIN [Concomitant]
     Active Substance: LEVOFLOXACIN
     Indication: Deep vein thrombosis

REACTIONS (18)
  - Malignant neoplasm progression [Unknown]
  - Decreased appetite [Recovered/Resolved]
  - Blood lactate dehydrogenase increased [Recovered/Resolved]
  - Deep vein thrombosis [Recovered/Resolved]
  - Fatigue [Recovered/Resolved]
  - Acquired hydrocele [Recovered/Resolved]
  - Radiotherapy to lymph nodes [Recovered/Resolved]
  - Radiotherapy to brain [Recovered/Resolved]
  - Blood alkaline phosphatase increased [Unknown]
  - Anaemia [Unknown]
  - Anxiety [Unknown]
  - Constipation [Unknown]
  - Deep vein thrombosis [Unknown]
  - Cough [Unknown]
  - Dry mouth [Unknown]
  - Hydronephrosis [Unknown]
  - Dysgeusia [Unknown]
  - Stomatitis [Unknown]

NARRATIVE: CASE EVENT DATE: 20190101
